FAERS Safety Report 10042569 (Version 1)
Quarter: 2014Q1

REPORT INFORMATION
  Report Type: Spontaneous
  Country: US (occurrence: None)
  Receive Date: 20140325
  Receipt Date: 20140325
  Transmission Date: 20141002
  Serious: Yes (Other)
  Sender: FDA-Public Use
  Company Number: 2014-US-003290

PATIENT
  Age: 49 Year
  Sex: Female
  Weight: 65.8 kg

DRUGS (7)
  1. XYREM [Suspect]
     Indication: DYSPNOEA
     Route: 048
     Dates: start: 200607, end: 2006
  2. NEXIUM I.V. [Concomitant]
  3. ZOLOFT (SERTRALINE HYDROCHLORIDE) [Concomitant]
  4. HYDROCHLOROTHIAZIDE [Concomitant]
  5. POTASSIUM (POTASSIUM) [Concomitant]
  6. MELATONIN (MELATONIN) [Concomitant]
  7. CLARITIN (LORATADINE) [Concomitant]

REACTIONS (4)
  - Adrenal neoplasm [None]
  - Dyspnoea [None]
  - Normetanephrine urine increased [None]
  - Off label use [None]
